FAERS Safety Report 9281805 (Version 2)
Quarter: 2013Q2

REPORT INFORMATION
  Report Type: Spontaneous
  Country: ES (occurrence: ES)
  Receive Date: 20130510
  Receipt Date: 20130529
  Transmission Date: 20140414
  Serious: Yes (Other)
  Sender: FDA-Public Use
  Company Number: ES-AMGEN-ESPSP2013032591

PATIENT
  Age: 61 Year
  Sex: Female

DRUGS (7)
  1. ENBREL [Suspect]
     Indication: ANKYLOSING SPONDYLITIS
     Dosage: 25 MG, WEEKLY
  2. DEXAMETHASONE SODIUM SULFATE [Suspect]
     Indication: UVEITIS
     Dosage: 2 GTT, EVERY 2 HOURS
     Dates: start: 2013
  3. DEXAMETHASONE SODIUM SULFATE [Suspect]
     Dosage: 2 GTT, EVERY 2 HOURS
     Dates: start: 2013
  4. SINTROM [Concomitant]
     Indication: AORTIC VALVE DISEASE
     Dosage: 2 UG, 1X/DAY
  5. EUTIROX [Concomitant]
     Indication: HYPOTHYROIDISM
     Dosage: 100 UG, 1X/DAY
  6. OMEPRAZOLE [Concomitant]
     Indication: GASTRITIS PROPHYLAXIS
     Dosage: 20 MG, 1X/DAY
  7. DOLOTREN                           /00372302/ [Concomitant]
     Indication: ANKYLOSING SPONDYLITIS
     Dosage: 50 MG, 1X/DAY

REACTIONS (2)
  - Muscle spasms [Not Recovered/Not Resolved]
  - Uveitis [Not Recovered/Not Resolved]
